FAERS Safety Report 20688028 (Version 3)
Quarter: 2022Q2

REPORT INFORMATION
  Report Type: Report from Study
  Country: CA (occurrence: CA)
  Receive Date: 20220408
  Receipt Date: 20220510
  Transmission Date: 20220721
  Serious: Yes (Other)
  Sender: FDA-Public Use
  Company Number: CA-ABBVIE-22K-028-4322494-00

PATIENT
  Sex: Female

DRUGS (8)
  1. VENCLEXTA [Suspect]
     Active Substance: VENETOCLAX
     Indication: Acute myeloid leukaemia
     Route: 048
     Dates: start: 20220106, end: 20220106
  2. VENCLEXTA [Suspect]
     Active Substance: VENETOCLAX
     Route: 048
     Dates: start: 20220107, end: 20220107
  3. VENCLEXTA [Suspect]
     Active Substance: VENETOCLAX
     Route: 048
     Dates: start: 20220108, end: 202204
  4. EPINEPHRINE [Concomitant]
     Active Substance: EPINEPHRINE
     Indication: Product used for unknown indication
     Route: 065
  5. POSACONAZOLE [Concomitant]
     Active Substance: POSACONAZOLE
     Indication: Prophylaxis
     Route: 048
     Dates: start: 202112
  6. AZACITIDINE [Concomitant]
     Active Substance: AZACITIDINE
     Indication: Acute myeloid leukaemia
     Route: 058
  7. VALTREX [Concomitant]
     Active Substance: VALACYCLOVIR HYDROCHLORIDE
     Indication: Prophylaxis
     Route: 048
     Dates: start: 202112
  8. FAMOTIDINE [Concomitant]
     Active Substance: FAMOTIDINE
     Indication: Oesophagitis
     Route: 048
     Dates: start: 202203

REACTIONS (27)
  - Pancytopenia [Not Recovered/Not Resolved]
  - Pulmonary oedema [Unknown]
  - Asthenia [Unknown]
  - Drug intolerance [Unknown]
  - Cardiac disorder [Unknown]
  - Hepatic steatosis [Unknown]
  - Nephropathy [Unknown]
  - Hydronephrosis [Not Recovered/Not Resolved]
  - Bladder dilatation [Unknown]
  - Gastrointestinal disorder [Unknown]
  - Aortic arteriosclerosis [Unknown]
  - Fat tissue increased [Unknown]
  - Emphysema [Unknown]
  - Nodule [Unknown]
  - Pleural effusion [Unknown]
  - Intervertebral disc degeneration [Unknown]
  - Intervertebral disc protrusion [Unknown]
  - Pain [Unknown]
  - Pulmonary septal thickening [Unknown]
  - Folate deficiency [Unknown]
  - Gallbladder enlargement [Unknown]
  - Dysplasia [Unknown]
  - Marrow hyperplasia [Unknown]
  - Leukopenia [Unknown]
  - Diarrhoea [Unknown]
  - Anaemia [Unknown]
  - Drug ineffective [Unknown]

NARRATIVE: CASE EVENT DATE: 20220101
